FAERS Safety Report 7466340-7 (Version None)
Quarter: 2011Q2

REPORT INFORMATION
  Report Type: 
  Country: None (occurrence: None)
  Receive Date: 20110509
  Receipt Date: 20100721
  Transmission Date: 20111010
  Serious: Yes (Hospitalization)
  Sender: FDA-Public Use
  Company Number: US-ALEXION-A201000811

PATIENT
  Sex: Female

DRUGS (14)
  1. COLACE [Concomitant]
     Indication: CONSTIPATION
     Dosage: 100 MG, BID
  2. SOLIRIS [Suspect]
     Dosage: 900 MG, Q2W
     Route: 042
     Dates: start: 20070807
  3. ALBUTEROL [Concomitant]
     Dosage: UNK
  4. CELEXA [Concomitant]
     Dosage: UNK
     Route: 048
  5. POTASSIUM CHLORIDE [Concomitant]
     Dosage: UNK
     Route: 048
  6. SOLIRIS [Suspect]
     Indication: PAROXYSMAL NOCTURNAL HAEMOGLOBINURIA
     Dosage: 600 MG, QW
     Route: 042
     Dates: start: 20070710, end: 20070731
  7. LOVENOX [Concomitant]
     Dosage: 100 MG, QD
  8. METOPROLOL TARTRATE [Concomitant]
     Dosage: UNK
  9. DILAUDID [Concomitant]
     Indication: PAIN
     Dosage: 2 MG, Q 3-4 HRS
  10. ADVAIR DISKUS 100/50 [Concomitant]
     Dosage: UNK
  11. COUMADIN [Concomitant]
     Dosage: 7.5 MG, QD
     Route: 048
  12. EXJADE [Concomitant]
     Dosage: 1500 MG, QD
     Route: 048
  13. ZITHROMAX [Concomitant]
     Dosage: 250 MG, QD
     Route: 048
  14. LASIX [Concomitant]
     Dosage: UNK
     Route: 048

REACTIONS (7)
  - BACK PAIN [None]
  - PAROXYSMAL NOCTURNAL HAEMOGLOBINURIA [None]
  - DIZZINESS [None]
  - HEADACHE [None]
  - CONTUSION [None]
  - CONDITION AGGRAVATED [None]
  - PALLOR [None]
